FAERS Safety Report 9132765 (Version 2)
Quarter: 2013Q1

REPORT INFORMATION
  Report Type: Spontaneous
  Country: US (occurrence: US)
  Receive Date: 20130301
  Receipt Date: 20130325
  Transmission Date: 20140127
  Serious: No
  Sender: FDA-Public Use
  Company Number: US-PFIZER INC-2013073862

PATIENT
  Age: 47 Year
  Sex: Female
  Weight: 90.7 kg

DRUGS (4)
  1. CHANTIX [Suspect]
     Indication: SMOKING CESSATION THERAPY
     Dosage: 0.5 MG, DAILY
  2. CHANTIX [Suspect]
     Dosage: UNK
     Dates: end: 201104
  3. ESTROGENS CONJUGATED [Suspect]
     Dosage: UNK
     Route: 048
  4. SYNTHROID [Concomitant]
     Indication: AUTOIMMUNE THYROIDITIS
     Dosage: 112 UG, DAILY

REACTIONS (3)
  - Abnormal dreams [Recovered/Resolved]
  - Weight decreased [Unknown]
  - Crying [Unknown]
